FAERS Safety Report 9337018 (Version 1)
Quarter: 2013Q2

REPORT INFORMATION
  Report Type: Report from Study
  Country: PT (occurrence: PT)
  Receive Date: 20130607
  Receipt Date: 20130607
  Transmission Date: 20140414
  Serious: Yes (Life-Threatening, Hospitalization, Other)
  Sender: FDA-Public Use
  Company Number: PT-ROCHE-1233957

PATIENT
  Age: 39 Year
  Sex: Male
  Weight: 56 kg

DRUGS (3)
  1. RIBAVIRIN [Suspect]
     Indication: HEPATITIS C
     Dosage: DIVIDED DOSES (400 MG+0+600 MG)
     Route: 048
     Dates: start: 20130301, end: 20130522
  2. BOCEPREVIR [Suspect]
     Indication: HEPATITIS C
     Dosage: DIVIDED DOSES (800 MG+800 MG+800 MG).
     Route: 048
     Dates: start: 20130328, end: 20130522
  3. PEG-INTERFERON ALFA 2A [Suspect]
     Indication: HEPATITIS C
     Route: 058
     Dates: start: 20130301, end: 20130517

REACTIONS (2)
  - Suicidal ideation [Recovering/Resolving]
  - Adjustment disorder [Recovering/Resolving]
